FAERS Safety Report 4374583-4 (Version None)
Quarter: 2004Q2

REPORT INFORMATION
  Report Type: 
  Country: None (occurrence: None)
  Receive Date: 20040609
  Receipt Date: 20040116
  Transmission Date: 20050107
  Serious: Yes (Hospitalization)
  Sender: FDA-Public Use
  Company Number: NL-ROCHE-356301

PATIENT
  Age: 47 Year
  Sex: Female

DRUGS (39)
  1. MYCOPHENOLATE MOFETIL [Suspect]
     Route: 065
     Dates: start: 20031205, end: 20031205
  2. MYCOPHENOLATE MOFETIL [Suspect]
     Route: 065
     Dates: start: 20031206, end: 20040115
  3. MYCOPHENOLATE MOFETIL [Suspect]
     Route: 065
     Dates: start: 20040129, end: 20040205
  4. MYCOPHENOLATE MOFETIL [Suspect]
     Route: 065
     Dates: start: 20040205, end: 20040213
  5. MYCOPHENOLATE MOFETIL [Suspect]
     Route: 065
     Dates: start: 20040213, end: 20040307
  6. MYCOPHENOLATE MOFETIL [Suspect]
     Route: 065
     Dates: start: 20040308, end: 20040328
  7. MYCOPHENOLATE MOFETIL [Suspect]
     Route: 065
     Dates: start: 20040329
  8. CYCLOSPORINE [Suspect]
     Route: 065
     Dates: start: 20031205, end: 20031210
  9. CYCLOSPORINE [Suspect]
     Route: 065
     Dates: start: 20031211, end: 20031212
  10. CYCLOSPORINE [Suspect]
     Route: 065
     Dates: start: 20031213, end: 20031223
  11. CYCLOSPORINE [Suspect]
     Route: 065
     Dates: start: 20031224, end: 20040107
  12. CYCLOSPORINE [Suspect]
     Route: 065
     Dates: start: 20040108, end: 20040114
  13. CYCLOSPORINE [Suspect]
     Dosage: POSSIBILITY FOR ORAL INTAKE
     Route: 065
     Dates: start: 20040126, end: 20040202
  14. CYCLOSPORINE [Suspect]
     Route: 065
     Dates: start: 20040203, end: 20040301
  15. CYCLOSPORINE [Suspect]
     Route: 065
     Dates: start: 20040302
  16. CYCLOSPORINE [Suspect]
     Dosage: CONTINUOUS 24 HOUR IV
     Route: 042
     Dates: start: 20040115, end: 20040125
  17. PREDNISOLONE [Suspect]
     Route: 065
     Dates: start: 20031205, end: 20031207
  18. PREDNISOLONE [Suspect]
     Route: 065
     Dates: start: 20040301
  19. PREDNISONE [Suspect]
     Route: 065
     Dates: start: 20031208, end: 20031209
  20. PREDNISONE [Suspect]
     Route: 065
     Dates: start: 20031210, end: 20031219
  21. PREDNISONE [Suspect]
     Dosage: REPORTED AS 15 MG ONCE A DAY 10 MG AND ONCE A DAY 5 MG.
     Route: 065
     Dates: start: 20031220, end: 20040107
  22. PREDNISONE [Suspect]
     Route: 065
     Dates: start: 20040108, end: 20040111
  23. PREDNISONE [Suspect]
     Route: 065
     Dates: start: 20040112, end: 20040124
  24. PREDNISONE [Suspect]
     Dosage: REPORTED AS 15 MG 10 MG ONCE A DAY AND 5 MG ONCE A DAY.
     Route: 065
     Dates: start: 20040125, end: 20040127
  25. PREDNISONE [Suspect]
     Route: 065
     Dates: start: 20040128, end: 20040229
  26. NIFEDIPINE [Concomitant]
     Indication: HYPERTENSION
     Dosage: STOPPED BETWEEN THE 17 DEC AND 23 DEC 2003.
     Dates: start: 20031215, end: 20040102
  27. ATENOLOL [Concomitant]
     Indication: HYPERTENSION
     Dates: start: 20031217
  28. AMLODIPINE [Concomitant]
     Indication: HYPERTENSION
     Dates: start: 20040116
  29. MIXTARD HUMAN 70/30 [Concomitant]
     Dates: start: 19840601
  30. ACTRAPID [Concomitant]
     Dates: start: 20031205, end: 20031208
  31. CEFTAZIDIM [Concomitant]
     Indication: BACTERIAL INFECTION
     Dates: start: 20031205, end: 20031208
  32. FUROSEMIDE [Concomitant]
     Dates: start: 20040209, end: 20040301
  33. FUCITHALMIC [Concomitant]
     Indication: CONJUNCTIVITIS
     Dates: start: 20040216, end: 20040301
  34. CEFUROXIM [Concomitant]
     Indication: BRONCHOPNEUMONIA
     Dates: start: 20031220, end: 20031223
  35. AUGMENTIN [Concomitant]
     Indication: BRONCHOPNEUMONIA
     Dates: start: 20031224, end: 20040101
  36. GANCICLOVIR [Concomitant]
     Route: 042
     Dates: start: 20040112, end: 20040130
  37. VALGANCICLOVIR [Concomitant]
     Route: 048
     Dates: start: 20040131, end: 20040216
  38. COTRIMOXAZOLE [Concomitant]
     Dates: start: 20040112, end: 20040120
  39. PENICILLIN [Concomitant]
     Dates: start: 20040113, end: 20040130

REACTIONS (6)
  - BLOOD CREATININE INCREASED [None]
  - BRONCHOPNEUMONIA [None]
  - CYTOMEGALOVIRUS INFECTION [None]
  - DIABETES MELLITUS INADEQUATE CONTROL [None]
  - INTERSTITIAL LUNG DISEASE [None]
  - PNEUMONIA STREPTOCOCCAL [None]
